FAERS Safety Report 7957726-2 (Version None)
Quarter: 2011Q4

REPORT INFORMATION
  Report Type: 
  Country: None (occurrence: None)
  Receive Date: 20111205
  Receipt Date: 20111124
  Transmission Date: 20120403
  Serious: Yes (Death)
  Sender: FDA-Public Use
  Company Number: PT-JNJFOC-20111111493

PATIENT
  Age: 69 Year
  Sex: Female

DRUGS (4)
  1. INFLIXIMAB, RECOMBINANT [Suspect]
     Indication: CROHN'S DISEASE
     Route: 042
     Dates: start: 20020901
  2. INFLIXIMAB, RECOMBINANT [Suspect]
     Route: 042
     Dates: start: 20080101
  3. AZATHIOPRINE [Concomitant]
     Dates: end: 20070101
  4. AZATHIOPRINE [Concomitant]
     Dosage: DOSE WAS RE INRODUCED BETWEEN 100 AND 150 MG DAILY

REACTIONS (2)
  - NEUROENDOCRINE CARCINOMA OF THE SKIN [None]
  - CROHN'S DISEASE [None]
